FAERS Safety Report 6331354-7 (Version None)
Quarter: 2009Q3

REPORT INFORMATION
  Report Type: 
  Country: None (occurrence: None)
  Receive Date: 20090827
  Receipt Date: 20090814
  Transmission Date: 20100115
  Serious: No
  Sender: FDA-Public Use
  Company Number: US-ELI_LILLY_AND_COMPANY-US200908003745

PATIENT
  Age: 39 Year
  Sex: Male

DRUGS (5)
  1. CYMBALTA [Suspect]
     Indication: ANXIETY
     Dosage: 120 MG, DAILY (1/D)
     Dates: start: 20070101
  2. CLONOPIN [Concomitant]
  3. ASPIRIN [Concomitant]
  4. SEROQUEL [Concomitant]
  5. ACCUPRIL [Concomitant]

REACTIONS (2)
  - ALANINE AMINOTRANSFERASE INCREASED [None]
  - ASPARTATE AMINOTRANSFERASE INCREASED [None]
